FAERS Safety Report 25425633 (Version 1)
Quarter: 2025Q2

REPORT INFORMATION
  Report Type: Spontaneous
  Country: SA (occurrence: SA)
  Receive Date: 20250611
  Receipt Date: 20250611
  Transmission Date: 20250717
  Serious: Yes (Other)
  Sender: ALKEM
  Company Number: SA-ALKEM LABORATORIES LIMITED-ES-ALKEM-2019-03155

PATIENT
  Age: 63 Year
  Sex: Male

DRUGS (1)
  1. CLOPIDOGREL [Suspect]
     Active Substance: CLOPIDOGREL BISULFATE
     Indication: Product used for unknown indication
     Route: 065

REACTIONS (3)
  - Systemic inflammatory response syndrome [Unknown]
  - Mixed liver injury [Recovered/Resolved]
  - Drug-induced liver injury [Unknown]
